FAERS Safety Report 10168076 (Version 2)
Quarter: 2014Q2

REPORT INFORMATION
  Report Type: Report from Study
  Country: US (occurrence: US)
  Receive Date: 20140512
  Receipt Date: 20140522
  Transmission Date: 20141212
  Serious: Yes (Death)
  Sender: FDA-Public Use
  Company Number: US-ACTELION-A-NJ2014-98464

PATIENT
  Age: 73 Year
  Sex: Male

DRUGS (4)
  1. MACITENTAN [Suspect]
     Indication: PULMONARY ARTERIAL HYPERTENSION
     Dosage: 10 MG, QD
     Route: 048
     Dates: start: 20131202, end: 20140312
  2. TRACLEER [Concomitant]
     Indication: PULMONARY ARTERIAL HYPERTENSION
     Dosage: UNK
     Route: 048
     Dates: start: 20131116, end: 20140312
  3. REVATIO [Concomitant]
  4. OXYGEN [Concomitant]
     Dosage: 6 L, CONTINUOUS

REACTIONS (2)
  - Sepsis [Fatal]
  - Pneumonia [Fatal]
